FAERS Safety Report 12295158 (Version 1)
Quarter: 2016Q2

REPORT INFORMATION
  Report Type: Spontaneous
  Country: US (occurrence: None)
  Receive Date: 20160421
  Receipt Date: 20160421
  Transmission Date: 20160815
  Serious: Yes (Hospitalization)
  Sender: FDA-Public Use
  Company Number: None

PATIENT
  Age: 56 Year
  Sex: Female

DRUGS (2)
  1. VIEKIRA PAK [Suspect]
     Active Substance: DASABUVIR\OMBITASVIR\PARITAPREVIR\RITONAVIR
     Indication: HEPATITIS C
     Dosage: 12.5/75/50MG 2 TABS DAILY PO
     Route: 048
     Dates: start: 20160215
  2. VIEKIRA PAK [Suspect]
     Active Substance: DASABUVIR\OMBITASVIR\PARITAPREVIR\RITONAVIR
     Indication: HEPATITIS C
     Dosage: 250 MG 1 TAB BID PO
     Route: 048
     Dates: start: 20160215

REACTIONS (3)
  - Blood pressure decreased [None]
  - Drug dose omission [None]
  - Acute kidney injury [None]

NARRATIVE: CASE EVENT DATE: 20160413
